FAERS Safety Report 9593084 (Version 1)
Quarter: 2013Q3

REPORT INFORMATION
  Report Type: Spontaneous
  Country: US (occurrence: None)
  Receive Date: 20130930
  Receipt Date: 20130930
  Transmission Date: 20140515
  Serious: Yes (Other)
  Sender: FDA-Public Use
  Company Number: 1000047757

PATIENT
  Age: 52 Year
  Sex: Female

DRUGS (5)
  1. LINZESS [Suspect]
     Indication: IRRITABLE BOWEL SYNDROME
     Dosage: 290 MCG (290 MCG, 1 IN 1 D), ORAL
     Route: 048
     Dates: start: 20130806
  2. NEURONTIN (GABAPENTIN) (600 MILLIGRAM, TABLETS) (GABAPENTIN) [Concomitant]
  3. LORAZEPAM (LORAZEPAM) (LORAZEPAM) [Concomitant]
  4. PROGESTERONE (PROGESTERONE) (PROGESTERONE) [Concomitant]
  5. ESTROGEL (ESTRADIOL) (ESTRADIOL) [Concomitant]

REACTIONS (2)
  - Dry mouth [None]
  - Dry eye [None]
